FAERS Safety Report 9910335 (Version 3)
Quarter: 2014Q1

REPORT INFORMATION
  Report Type: Spontaneous
  Country: US (occurrence: US)
  Receive Date: 20140219
  Receipt Date: 20140319
  Transmission Date: 20141002
  Serious: Yes (Death, Hospitalization, Other)
  Sender: FDA-Public Use
  Company Number: US-BAXTER-2014BAX007975

PATIENT
  Sex: Female

DRUGS (6)
  1. DIANEAL LOW CALCIUM [Suspect]
     Indication: PERITONEAL DIALYSIS
     Route: 033
     Dates: end: 20140309
  2. DIANEAL LOW CALCIUM [Suspect]
     Indication: PERITONEAL DIALYSIS
     Route: 033
     Dates: end: 20140309
  3. DIANEAL LOW CALCIUM [Suspect]
     Indication: PERITONEAL DIALYSIS
     Route: 033
     Dates: end: 20140309
  4. EXTRANEAL [Suspect]
     Indication: PERITONEAL DIALYSIS
     Route: 033
     Dates: end: 20140309
  5. INSULIN [Suspect]
     Indication: DIABETES MELLITUS
     Route: 041
  6. DEXAMETHASONE [Suspect]
     Indication: IMMUNOSUPPRESSION
     Route: 065

REACTIONS (15)
  - Hypoglycaemia [Fatal]
  - Encephalopathy [Fatal]
  - Influenza [Recovering/Resolving]
  - Gastrointestinal haemorrhage [Not Recovered/Not Resolved]
  - Laryngeal oedema [Unknown]
  - Laryngeal oedema [Not Recovered/Not Resolved]
  - Angioedema [Not Recovered/Not Resolved]
  - Device interaction [Unknown]
  - Acute respiratory failure [Not Recovered/Not Resolved]
  - Coma [Not Recovered/Not Resolved]
  - Sepsis [Not Recovered/Not Resolved]
  - Fungal peritonitis [Not Recovered/Not Resolved]
  - Superior vena cava syndrome [Unknown]
  - Incoherent [Unknown]
  - Communication disorder [Unknown]
